FAERS Safety Report 8832843 (Version 1)
Quarter: 2012Q4

REPORT INFORMATION
  Report Type: 
  Country: US (occurrence: US)
  Receive Date: 20121010
  Receipt Date: 20121010
  Transmission Date: 20130627
  Serious: No
  Sender: FDA-Public Use
  Company Number: US-009507513-1210USA002798

PATIENT
  Age: 18 Year
  Sex: Male

DRUGS (1)
  1. SAPHRIS [Suspect]
     Dosage: 5 mg, qd
     Route: 060
     Dates: end: 201209

REACTIONS (2)
  - Extrapyramidal disorder [Recovering/Resolving]
  - Underdose [Unknown]
